FAERS Safety Report 7625823 (Version 3)
Quarter: 2013Q4

REPORT INFORMATION
  Report Type: Spontaneous
  Country: FR (occurrence: FR)
  Receive Date: 20101012
  Receipt Date: 20131031
  Transmission Date: 20140711
  Serious: Yes (Hospitalization, Other)
  Sender: FDA-Public Use
  Company Number: FR-MERCK-1010FRA00025

PATIENT
  Age: 54 Year
  Sex: Male

DRUGS (10)
  1. EZETROL [Suspect]
     Indication: DYSLIPIDAEMIA
     Dosage: 10 MG, QD
     Route: 048
  2. COLCHIMAX (COLCHICINE (+) OPIUM, POWDERED (+) TIEMONIUM METHYLSULFATE) [Suspect]
     Indication: GOUT
     Dosage: 1 DF, QD
     Route: 048
     Dates: start: 201004, end: 201004
  3. COLCHIMAX (COLCHICINE (+) OPIUM, POWDERED (+) TIEMONIUM METHYLSULFATE) [Suspect]
     Dosage: 1 DF, QD
     Route: 048
     Dates: start: 20100426, end: 20100528
  4. ZYLORIC [Suspect]
     Indication: GOUT
     Dosage: 300 MG, QD
     Route: 048
     Dates: start: 20100519, end: 20100528
  5. LESCOL [Suspect]
     Dosage: 20 MG, QD
     Route: 048
  6. CARDENSIEL [Concomitant]
     Dosage: 7.5 MG, QD
  7. LASILIX [Concomitant]
     Dosage: 120 MG, QD
  8. KARDEGIC [Concomitant]
     Dosage: 75 MG, QD
  9. PREVISCAN [Concomitant]
     Dosage: 0.5 DF, QD
     Route: 048
  10. LEVOTHYROX [Concomitant]
     Dosage: 25 ?G, QD
     Route: 048

REACTIONS (5)
  - Rhabdomyolysis [Recovered/Resolved]
  - Purpura [Recovered/Resolved]
  - Palmar erythema [Recovered/Resolved]
  - Eyelid oedema [Recovered/Resolved]
  - Drug interaction [Recovered/Resolved]
